FAERS Safety Report 6612779-9 (Version None)
Quarter: 2010Q1

REPORT INFORMATION
  Report Type: 
  Country: None (occurrence: None)
  Receive Date: 20100223
  Receipt Date: 20100211
  Transmission Date: 20100710
  Serious: Yes (Other)
  Sender: FDA-Public Use
  Company Number: 2010018620

PATIENT
  Sex: Male

DRUGS (1)
  1. FRAGMIN [Suspect]
     Indication: HYPERCOAGULATION
     Dosage: 5000 IU, 2X/DAY, SUBCUTANEOUS
     Route: 058
     Dates: start: 20100208

REACTIONS (2)
  - INJECTION SITE INJURY [None]
  - MEDICAL DEVICE COMPLICATION [None]
